FAERS Safety Report 5533316-6 (Version None)
Quarter: 2007Q4

REPORT INFORMATION
  Report Type: 
  Country: None (occurrence: None)
  Receive Date: 20071129
  Receipt Date: 20071129
  Transmission Date: 20080405
  Serious: Yes (Hospitalization)
  Sender: FDA-Public Use
  Company Number: None

PATIENT
  Sex: Female
  Weight: 48.9 kg

DRUGS (2)
  1. TEMOZOLOMIDE [Suspect]
     Dosage: 1100 MG
  2. DEXAMETHASONE TAB [Concomitant]

REACTIONS (5)
  - BRAIN OEDEMA [None]
  - CONFUSIONAL STATE [None]
  - DISEASE PROGRESSION [None]
  - FALL [None]
  - SPEECH DISORDER [None]
